FAERS Safety Report 25431996 (Version 1)
Quarter: 2025Q2

REPORT INFORMATION
  Report Type: Spontaneous
  Country: US (occurrence: US)
  Receive Date: 20250613
  Receipt Date: 20250613
  Transmission Date: 20250717
  Serious: Yes (Hospitalization, Other)
  Sender: SANOFI AVENTIS
  Company Number: US-SA-2025SA165116

PATIENT
  Age: 73 Year
  Sex: Female
  Weight: 85.45 kg

DRUGS (13)
  1. KEVZARA [Suspect]
     Active Substance: SARILUMAB
     Dosage: QOW
  2. PREDNISONE [Suspect]
     Active Substance: PREDNISONE
     Dosage: 1 DF, QD
  3. URSODIOL [Concomitant]
     Active Substance: URSODIOL
  4. SERTRALINE HYDROCHLORIDE [Concomitant]
     Active Substance: SERTRALINE HYDROCHLORIDE
     Dosage: 1 DF, QD
  5. MESALAMINE [Concomitant]
     Active Substance: MESALAMINE
  6. TRAZODONE HYDROCHLORIDE [Concomitant]
     Active Substance: TRAZODONE HYDROCHLORIDE
     Dosage: 1 DF, QD
  7. LEVOTHYROXINE SODIUM [Concomitant]
     Active Substance: LEVOTHYROXINE SODIUM
     Dosage: 1 DF, QD
  8. ALLOPURINOL [Concomitant]
     Active Substance: ALLOPURINOL
     Dosage: 1 DF, QD
  9. FAMOTIDINE [Concomitant]
     Active Substance: FAMOTIDINE
     Dosage: 2 DF, QD
  10. ATORVASTATIN CALCIUM [Concomitant]
     Active Substance: ATORVASTATIN CALCIUM
     Dosage: 1 DF, QD
  11. SHINGRIX [Concomitant]
     Active Substance: RECOMBINANT VARICELLA ZOSTER VIRUS (VZV) GLYCOPROTEIN E
  12. INFLUENZA VIRUS VACCINE [Concomitant]
     Active Substance: INFLUENZA VIRUS VACCINE
  13. PNEUMOCOCCAL VACCINE POLYVALENT NOS [Concomitant]
     Active Substance: PNEUMOCOCCAL VACCINE, POLYVALENT

REACTIONS (27)
  - Swelling [Unknown]
  - Weight increased [Unknown]
  - Hip fracture [Unknown]
  - Polymyalgia rheumatica [Unknown]
  - Diverticulitis [Unknown]
  - Blood urea increased [Unknown]
  - Blood creatinine increased [Unknown]
  - Faecal calprotectin increased [Unknown]
  - Gait disturbance [Unknown]
  - Peripheral swelling [Unknown]
  - Joint swelling [Unknown]
  - Pain [Unknown]
  - Tremor [Unknown]
  - Myalgia [Unknown]
  - Neck pain [Unknown]
  - Balance disorder [Unknown]
  - Red blood cell sedimentation rate increased [Unknown]
  - C-reactive protein increased [Unknown]
  - Bone disorder [Unknown]
  - Transaminases increased [Unknown]
  - Blood albumin decreased [Unknown]
  - Dry mouth [Unknown]
  - Malaise [Unknown]
  - Ataxia [Unknown]
  - Vitamin D deficiency [Unknown]
  - Oedema peripheral [Unknown]
  - Fall [Unknown]
